FAERS Safety Report 7586352-2 (Version None)
Quarter: 2011Q2

REPORT INFORMATION
  Report Type: 
  Country: None (occurrence: None)
  Receive Date: 20110630
  Receipt Date: 20110630
  Transmission Date: 20111010
  Serious: Yes (Hospitalization)
  Sender: FDA-Public Use
  Company Number: None

PATIENT
  Sex: Female
  Weight: 106 kg

DRUGS (3)
  1. HERCEPTIN [Suspect]
     Dosage: 660 MG
     Dates: end: 20110614
  2. CARBOPLATIN [Suspect]
     Dosage: 785 MG
     Dates: end: 20110607
  3. DOCETAXEL [Suspect]
     Dosage: 160 MG
     Dates: end: 20110607

REACTIONS (4)
  - BREAST DISORDER FEMALE [None]
  - ERYTHEMA [None]
  - CHILLS [None]
  - BODY TEMPERATURE INCREASED [None]
